FAERS Safety Report 12429689 (Version 1)
Quarter: 2016Q2

REPORT INFORMATION
  Report Type: Spontaneous
  Country: KR (occurrence: KR)
  Receive Date: 20160602
  Receipt Date: 20160602
  Transmission Date: 20160815
  Serious: Yes (Death, Other)
  Sender: FDA-Public Use
  Company Number: KR-FRESENIUS KABI-FK201603223

PATIENT
  Age: 15 Year
  Sex: Male

DRUGS (2)
  1. GEMCITABINE [Suspect]
     Active Substance: GEMCITABINE\GEMCITABINE HYDROCHLORIDE
     Indication: OSTEOSARCOMA
     Route: 065
  2. DOCETAXEL (MANUFACTURER UNKNOWN) [Suspect]
     Active Substance: DOCETAXEL
     Indication: OSTEOSARCOMA
     Route: 065

REACTIONS (3)
  - Pleural effusion [Unknown]
  - Disease progression [Fatal]
  - Pneumonia [Unknown]
